FAERS Safety Report 7755362-4 (Version None)
Quarter: 2011Q3

REPORT INFORMATION
  Report Type: 
  Country: None (occurrence: None)
  Receive Date: 20110916
  Receipt Date: 20110907
  Transmission Date: 20111222
  Serious: Yes (Life-Threatening)
  Sender: FDA-Public Use
  Company Number: US-SHIONOGI, INC-2011000139

PATIENT

DRUGS (5)
  1. EPINEPHRINE [Suspect]
     Indication: ANAPHYLACTIC SHOCK
     Dosage: 0.3 MG, UNK
     Dates: start: 20110813, end: 20110813
  2. LOSARTAN POTASSIUM [Concomitant]
     Indication: BLOOD PRESSURE
     Dosage: UNK
  3. BENADRYL [Concomitant]
     Indication: HYPERSENSITIVITY
     Dosage: UNK
  4. EPINEPHRINE [Suspect]
     Dosage: 0.3 MG, UNK
     Dates: start: 20110819, end: 20110819
  5. PEPCID [Concomitant]
     Indication: HYPERSENSITIVITY
     Dosage: UNK

REACTIONS (2)
  - DEVICE MALFUNCTION [None]
  - PRODUCT QUALITY ISSUE [None]
